FAERS Safety Report 4624022-0 (Version None)
Quarter: 2005Q1

REPORT INFORMATION
  Report Type: 
  Country: None (occurrence: None)
  Receive Date: 20050331
  Receipt Date: 20050324
  Transmission Date: 20050727
  Serious: Yes (Other)
  Sender: FDA-Public Use
  Company Number: PHEH2005US03614

PATIENT
  Sex: Female

DRUGS (1)
  1. CAFERGOT [Suspect]
     Indication: HEADACHE
     Dosage: 2-3 WEEKLY

REACTIONS (1)
  - ALVEOLITIS ALLERGIC [None]
